FAERS Safety Report 20094707 (Version 1)
Quarter: 2021Q4

REPORT INFORMATION
  Report Type: Spontaneous
  Country: US (occurrence: US)
  Receive Date: 20211122
  Receipt Date: 20211122
  Transmission Date: 20220304
  Serious: No
  Sender: FDA-Public Use
  Company Number: US-GE HEALTHCARE-2021CSU005261

PATIENT
  Age: 74 Year
  Sex: Female

DRUGS (4)
  1. MYOVIEW [Suspect]
     Active Substance: TECHNETIUM TC-99M TETROFOSMIN
     Indication: Scan myocardial perfusion
     Dosage: UNK UNK, SINGLE
     Route: 065
     Dates: start: 2010, end: 2010
  2. MYOVIEW [Suspect]
     Active Substance: TECHNETIUM TC-99M TETROFOSMIN
     Indication: Product used for unknown indication
  3. TECHNETIUM TC-99M [Concomitant]
     Active Substance: TECHNETIUM TC-99M
     Indication: Scan myocardial perfusion
     Dosage: UNK UNK, SINGLE
     Dates: start: 2010, end: 2010
  4. TECHNETIUM TC-99M [Concomitant]
     Active Substance: TECHNETIUM TC-99M
     Indication: Product used for unknown indication

REACTIONS (3)
  - Heart rate abnormal [Unknown]
  - Pain [Unknown]
  - Heart rate increased [Unknown]

NARRATIVE: CASE EVENT DATE: 20100101
